FAERS Safety Report 13886236 (Version 1)
Quarter: 2017Q3

REPORT INFORMATION
  Report Type: Spontaneous
  Country: US (occurrence: US)
  Receive Date: 20170821
  Receipt Date: 20170821
  Transmission Date: 20171127
  Serious: Yes (Death, Hospitalization, Other)
  Sender: FDA-Public Use
  Company Number: US-009507513-1708USA007844

PATIENT
  Age: 72 Year
  Sex: Female
  Weight: 46.5 kg

DRUGS (3)
  1. DECADRON [Suspect]
     Active Substance: DEXAMETHASONE
     Indication: PLASMA CELL MYELOMA
     Dosage: 20 DF, QD
     Route: 042
     Dates: start: 20160929, end: 20161214
  2. DOXIL [Suspect]
     Active Substance: DOXORUBICIN HYDROCHLORIDE
     Indication: PLASMA CELL MYELOMA
     Dosage: 43 DF, UNK; FREQUENCY: 4 AND 20
     Route: 042
     Dates: start: 20160929, end: 20161214
  3. VELCADE [Suspect]
     Active Substance: BORTEZOMIB
     Indication: PLASMA CELL MYELOMA
     Dosage: 1.3 DF, UNK; FREQUENCY: 1, 4, 8, AND 11
     Route: 042
     Dates: start: 20160929, end: 20161214

REACTIONS (1)
  - Plasma cell myeloma [Fatal]

NARRATIVE: CASE EVENT DATE: 2016
